FAERS Safety Report 22027957 (Version 1)
Quarter: 2023Q1

REPORT INFORMATION
  Report Type: Spontaneous
  Country: US (occurrence: US)
  Receive Date: 20230223
  Receipt Date: 20230223
  Transmission Date: 20230417
  Serious: Yes (Other)
  Sender: FDA-Public Use
  Company Number: US-MYLANLABS-2023M1019768

PATIENT
  Age: 70 Year
  Sex: Female

DRUGS (2)
  1. CLONAZEPAM [Suspect]
     Active Substance: CLONAZEPAM
     Indication: Oral dysaesthesia
     Dosage: UNK
     Route: 061
  2. CLONAZEPAM [Suspect]
     Active Substance: CLONAZEPAM
     Indication: Oral dysaesthesia
     Dosage: UNK SYSTEMIC
     Route: 065

REACTIONS (2)
  - Drug ineffective for unapproved indication [Unknown]
  - Off label use [Unknown]
